FAERS Safety Report 7117554-7 (Version None)
Quarter: 2010Q4

REPORT INFORMATION
  Report Type: 
  Country: None (occurrence: None)
  Receive Date: 20101122
  Receipt Date: 20101115
  Transmission Date: 20110411
  Serious: Yes (Hospitalization, Other)
  Sender: FDA-Public Use
  Company Number: US-RB-014716-10

PATIENT
  Age: 63 Year
  Sex: Male

DRUGS (3)
  1. SUBOXONE [Suspect]
     Dosage: DRUG DOSAGE UNKNOWN AT THIS TIME.
     Route: 065
  2. SUBOXONE [Suspect]
     Indication: PRODUCT USED FOR UNKNOWN INDICATION
     Dosage: STATES HE WAS SELF-TAPERING,TAKING LESS THAN PRESCRIBED
     Route: 065
  3. SUBOXONE [Suspect]
     Indication: PRODUCT USED FOR UNKNOWN INDICATION
     Dosage: DOSAGE INFORMATION UNKNOWN - (SUBOXONE SUBLINGUAL FILM)
     Route: 065

REACTIONS (10)
  - BURSITIS [None]
  - DIZZINESS [None]
  - FALL [None]
  - HYPERTENSION [None]
  - INTENTIONAL DRUG MISUSE [None]
  - JOINT INJURY [None]
  - MALAISE [None]
  - NAUSEA [None]
  - TONGUE COATED [None]
  - VOMITING [None]
